FAERS Safety Report 11265530 (Version 1)
Quarter: 2015Q3

REPORT INFORMATION
  Report Type: Spontaneous
  Country: AU (occurrence: AU)
  Receive Date: 20150713
  Receipt Date: 20150713
  Transmission Date: 20151125
  Serious: Yes (Hospitalization)
  Sender: FDA-Public Use
  Company Number: AU-AMGEN-AUSSP2015064982

PATIENT
  Age: 87 Year
  Sex: Female

DRUGS (1)
  1. PROLIA [Suspect]
     Active Substance: DENOSUMAB
     Indication: OSTEOPOROTIC FRACTURE
     Dosage: UNK
     Route: 065
     Dates: start: 201406

REACTIONS (6)
  - Paraesthesia [Unknown]
  - Hypocalcaemia [Recovered/Resolved]
  - Hypomagnesaemia [Unknown]
  - Muscle spasms [Unknown]
  - Vitamin D deficiency [Unknown]
  - Paraesthesia oral [Unknown]
